FAERS Safety Report 6420054-0 (Version None)
Quarter: 2009Q4

REPORT INFORMATION
  Report Type: 
  Country: None (occurrence: None)
  Receive Date: 20091029
  Receipt Date: 20091021
  Transmission Date: 20100525
  Serious: Yes (Life-Threatening)
  Sender: FDA-Public Use
  Company Number: US-BAUSCH-2009BL005311

PATIENT
  Age: 46 Year
  Sex: Female

DRUGS (4)
  1. TOBRAMYCIN AND DEXAMETHASONE OPHTHALMIC SUSPENSION USP 0.3%/0.1% [Suspect]
     Indication: EYE INJURY
     Route: 047
     Dates: start: 20091017, end: 20091017
  2. MILNACIPRAN [Concomitant]
     Indication: FIBROMYALGIA
     Route: 048
  3. VICODIN [Concomitant]
     Indication: PAIN
     Route: 048
  4. KLONOPIN [Concomitant]
     Indication: INSOMNIA
     Route: 048

REACTIONS (1)
  - ANAPHYLACTIC REACTION [None]
